FAERS Safety Report 23016427 (Version 1)
Quarter: 2023Q4

REPORT INFORMATION
  Report Type: Spontaneous
  Country: CN (occurrence: CN)
  Receive Date: 20231002
  Receipt Date: 20231002
  Transmission Date: 20240110
  Serious: Yes (Other)
  Sender: FDA-Public Use
  Company Number: None

PATIENT
  Age: 74 Year
  Sex: Female
  Weight: 50 kg

DRUGS (2)
  1. MANNITOL [Suspect]
     Active Substance: MANNITOL
     Indication: Dizziness
     Dosage: 100 ML ONCE DAILY, DOSAGE FORM: INJECTION
     Route: 041
     Dates: start: 20230921, end: 20230921
  2. MANNITOL [Suspect]
     Active Substance: MANNITOL
     Indication: Reduction of increased intracranial pressure

REACTIONS (7)
  - Arrhythmia [Unknown]
  - Erythema [Recovering/Resolving]
  - Protrusion tongue [Unknown]
  - Respiration abnormal [Unknown]
  - Chest discomfort [Recovering/Resolving]
  - Rash [Recovering/Resolving]
  - Pruritus [Recovering/Resolving]

NARRATIVE: CASE EVENT DATE: 20230921
